FAERS Safety Report 9472380 (Version 11)
Quarter: 2014Q1

REPORT INFORMATION
  Report Type: Report from Study
  Country: CA (occurrence: CA)
  Receive Date: 20130823
  Receipt Date: 20140326
  Transmission Date: 20141002
  Serious: Yes (Other)
  Sender: FDA-Public Use
  Company Number: CA-ROCHE-1219758

PATIENT
  Age: 60 Year
  Sex: Female
  Weight: 53.8 kg

DRUGS (8)
  1. ACTEMRA [Suspect]
     Indication: RHEUMATOID ARTHRITIS
     Route: 042
     Dates: start: 20130425, end: 20140319
  2. ACTEMRA [Suspect]
     Route: 042
     Dates: start: 20130620
  3. RITUXAN [Suspect]
     Indication: RHEUMATOID ARTHRITIS
     Route: 042
     Dates: start: 20080214, end: 20100226
  4. CELEBREX [Concomitant]
  5. PREDNISONE [Concomitant]
  6. DIPHENHYDRAMINE HCL [Concomitant]
     Route: 048
     Dates: start: 20100210, end: 20100226
  7. ACETAMINOPHEN [Concomitant]
     Route: 048
     Dates: start: 20100210, end: 20100226
  8. METHYLPREDNISOLONE [Concomitant]
     Route: 048
     Dates: start: 20100210, end: 20100226

REACTIONS (18)
  - Migraine [Unknown]
  - Hypoaesthesia [Recovered/Resolved]
  - Blood pressure increased [Unknown]
  - Dizziness [Recovered/Resolved]
  - Sinus headache [Recovered/Resolved]
  - Lower respiratory tract infection [Recovering/Resolving]
  - Sinusitis [Recovering/Resolving]
  - Device failure [Recovered/Resolved]
  - Headache [Recovered/Resolved]
  - Anxiety [Recovered/Resolved]
  - Diarrhoea [Recovered/Resolved]
  - Vomiting [Recovered/Resolved]
  - Nausea [Recovered/Resolved]
  - Chills [Recovered/Resolved]
  - Pain [Recovered/Resolved]
  - Hypotension [Unknown]
  - Alopecia [Unknown]
  - Joint swelling [Unknown]
